FAERS Safety Report 8236654-1 (Version None)
Quarter: 2012Q1

REPORT INFORMATION
  Report Type: 
  Country: None (occurrence: None)
  Receive Date: 20120326
  Receipt Date: 20120326
  Transmission Date: 20120608
  Serious: Yes (Life-Threatening)
  Sender: FDA-Public Use
  Company Number: None

PATIENT
  Sex: Male
  Weight: 98.8842 kg

DRUGS (1)
  1. REBIF [Suspect]
     Indication: MULTIPLE SCLEROSIS
     Dosage: 3TIMES WEEKLY
     Dates: start: 20090501, end: 20101101

REACTIONS (7)
  - INJECTION SITE DISCOLOURATION [None]
  - LIVEDO RETICULARIS [None]
  - MALABSORPTION [None]
  - INJECTION SITE REACTION [None]
  - CHILLS [None]
  - HYPERHIDROSIS [None]
  - VOMITING [None]
